FAERS Safety Report 14688424 (Version 1)
Quarter: 2018Q1

REPORT INFORMATION
  Report Type: Spontaneous
  Country: CN (occurrence: CN)
  Receive Date: 20180328
  Receipt Date: 20180328
  Transmission Date: 20180509
  Serious: Yes (Hospitalization)
  Sender: FDA-Public Use
  Company Number: CN-ELI_LILLY_AND_COMPANY-CN201803009030

PATIENT
  Age: 58 Year
  Sex: Male
  Weight: 95 kg

DRUGS (5)
  1. HUMULIN 70/30 [Suspect]
     Active Substance: INSULIN HUMAN
     Indication: TYPE 2 DIABETES MELLITUS
     Dosage: 26 U, EACH MORNING
     Route: 058
     Dates: start: 2014, end: 201802
  2. HUMULIN 70/30 [Suspect]
     Active Substance: INSULIN HUMAN
     Dosage: 22 U, DAILY (AT NIGHT)
     Route: 058
     Dates: start: 2014, end: 201802
  3. GINATON [Concomitant]
     Indication: CEREBRAL INFARCTION
  4. LIPITOR [Concomitant]
     Active Substance: ATORVASTATIN CALCIUM
     Indication: BLOOD CHOLESTEROL INCREASED
  5. GLUCOBAY [Concomitant]
     Active Substance: ACARBOSE
     Indication: TYPE 2 DIABETES MELLITUS
     Dosage: 1 DF, TID
     Route: 048

REACTIONS (2)
  - Blood glucose abnormal [Recovered/Resolved]
  - Peripheral arterial occlusive disease [Unknown]
